FAERS Safety Report 22215999 (Version 1)
Quarter: 2023Q2

REPORT INFORMATION
  Report Type: Report from Study
  Country: CA (occurrence: CA)
  Receive Date: 20230417
  Receipt Date: 20230417
  Transmission Date: 20230722
  Serious: Yes (Hospitalization)
  Sender: FDA-Public Use
  Company Number: CA-ABBVIE-4729511

PATIENT
  Age: 68 Year
  Sex: Male

DRUGS (11)
  1. SKYRIZI [Suspect]
     Active Substance: RISANKIZUMAB-RZAA
     Indication: Psoriasis
     Route: 058
     Dates: start: 20191017, end: 20191117
  2. SKYRIZI [Suspect]
     Active Substance: RISANKIZUMAB-RZAA
     Route: 058
     Dates: start: 20191117
  3. VENTOLIN [Concomitant]
     Active Substance: ALBUTEROL SULFATE
     Indication: Chronic obstructive pulmonary disease
     Dosage: AS NEEDED
     Route: 048
     Dates: start: 19980101
  4. OXYGEN [Concomitant]
     Active Substance: OXYGEN
     Indication: Chronic obstructive pulmonary disease
     Dosage: AS NEEDED
     Dates: start: 201911
  5. MORPHINE [Concomitant]
     Active Substance: MORPHINE
     Indication: Hip fracture
     Dosage: AS NEEDED
     Route: 048
     Dates: start: 20191220
  6. SYMBICORT [Concomitant]
     Active Substance: BUDESONIDE\FORMOTEROL FUMARATE DIHYDRATE
     Indication: Chronic obstructive pulmonary disease
     Route: 048
     Dates: start: 19980101
  7. APIXABAN [Concomitant]
     Active Substance: APIXABAN
     Indication: Pulmonary haemorrhage
     Route: 048
     Dates: start: 20220520
  8. LASIX [Concomitant]
     Active Substance: FUROSEMIDE
     Indication: Oedema
     Dosage: AS NEEDED
     Route: 048
     Dates: start: 201906
  9. LUMIGAN [Concomitant]
     Active Substance: BIMATOPROST
     Indication: Cataract
     Dosage: DAILY
     Route: 047
     Dates: start: 20200522
  10. CALCIUM [Concomitant]
     Active Substance: CALCIUM
     Indication: Hip fracture
     Route: 048
     Dates: start: 20191223
  11. SPIRIVA [Concomitant]
     Active Substance: TIOTROPIUM BROMIDE MONOHYDRATE
     Indication: Chronic obstructive pulmonary disease
     Route: 048
     Dates: start: 20000101

REACTIONS (1)
  - Pulmonary embolism [Not Recovered/Not Resolved]

NARRATIVE: CASE EVENT DATE: 20220515
